FAERS Safety Report 9698574 (Version 2)
Quarter: 2014Q1

REPORT INFORMATION
  Report Type: Spontaneous
  Country: FR (occurrence: FR)
  Receive Date: 20131120
  Receipt Date: 20140218
  Transmission Date: 20141002
  Serious: Yes (Other)
  Sender: FDA-Public Use
  Company Number: FR-PFIZER INC-2013327878

PATIENT
  Age: 85 Year
  Sex: Male
  Weight: 97 kg

DRUGS (5)
  1. LYRICA [Suspect]
     Indication: NEURALGIA
     Dosage: 50 MG, 2X/DAY
     Route: 048
     Dates: start: 20120525, end: 201206
  2. LYRICA [Suspect]
     Dosage: 75 MG, 2X/DAY
     Route: 048
     Dates: start: 201206
  3. LYRICA [Suspect]
     Dosage: 100 MG, 2X/DAY
     Route: 048
     Dates: start: 201211, end: 20130404
  4. CYMBALTA [Concomitant]
     Indication: PAIN
     Dosage: 60 MG, 1X/DAY
     Route: 048
     Dates: start: 20120727
  5. LAROXYL [Concomitant]
     Indication: PAIN
     Dosage: 40 MG, 1X/DAY
     Route: 048
     Dates: start: 20130409, end: 20131008

REACTIONS (1)
  - Neutropenia [Recovered/Resolved]
